FAERS Safety Report 4788287-7 (Version None)
Quarter: 2005Q4

REPORT INFORMATION
  Report Type: 
  Country: None (occurrence: None)
  Receive Date: 20051003
  Receipt Date: 20050919
  Transmission Date: 20060501
  Serious: Yes (Disabling)
  Sender: FDA-Public Use
  Company Number: GB-2005-019453

PATIENT
  Age: 38 Year
  Sex: Female
  Weight: 65 kg

DRUGS (5)
  1. MIRENA [Suspect]
     Indication: CONTRACEPTION
     Dosage: 20 UG/DAY, CONT, INTRA-UTERINE
     Route: 015
     Dates: start: 20041019
  2. PREDNISOLONE SODIUM PHOSPHATE [Concomitant]
  3. LIQUIFILM TEARS       (CHLOROBUTANOL , POLYVINYL ALCOHOL) [Concomitant]
  4. BETNOVATE [Concomitant]
  5. LIQUIFILM           (POLYVINYL ALCOHOL) [Concomitant]

REACTIONS (5)
  - CONDITION AGGRAVATED [None]
  - EYE DISORDER [None]
  - INFECTION [None]
  - MEIBOMIAN GLAND DISCHARGE [None]
  - TRICHIASIS [None]
